FAERS Safety Report 21291821 (Version 1)
Quarter: 2022Q3

REPORT INFORMATION
  Report Type: Spontaneous
  Country: CA (occurrence: CA)
  Receive Date: 20220903
  Receipt Date: 20220903
  Transmission Date: 20221027
  Serious: Yes (Life-Threatening, Hospitalization, Other)
  Sender: FDA-Public Use
  Company Number: CA-SA-2022SA356869

PATIENT
  Age: 55 Year
  Sex: Female

DRUGS (4)
  1. PREDNISOLONE [Suspect]
     Active Substance: PREDNISOLONE
     Indication: Renal transplant
     Dosage: 5 MG
     Route: 065
  2. ANTI-THYMOCYTE GLOBULIN (RABBIT) NOS [Suspect]
     Active Substance: LAPINE T-LYMPHOCYTE IMMUNE GLOBULIN
     Indication: Transplant rejection
     Dosage: INJECTION
     Route: 065
  3. CYCLOSPORINE [Suspect]
     Active Substance: CYCLOSPORINE
     Indication: Renal transplant
     Dosage: 50 MG
     Route: 065
  4. MYCOPHENOLATE MOFETIL [Suspect]
     Active Substance: MYCOPHENOLATE MOFETIL
     Indication: Renal transplant
     Dosage: 500 MG
     Route: 065

REACTIONS (9)
  - Diarrhoea haemorrhagic [Recovered/Resolved]
  - Pulmonary oedema [Recovered/Resolved]
  - Vasogenic cerebral oedema [Recovered/Resolved]
  - Cryptococcosis [Recovered/Resolved]
  - Cryptococcal meningoencephalitis [Recovered/Resolved]
  - Cytomegalovirus infection [Recovered/Resolved]
  - Device related sepsis [Recovered/Resolved]
  - Pneumonia [Recovered/Resolved]
  - Sepsis [Recovered/Resolved]
